FAERS Safety Report 8102376-0 (Version None)
Quarter: 2012Q1

REPORT INFORMATION
  Report Type: 
  Country: None (occurrence: None)
  Receive Date: 20120201
  Receipt Date: 20120126
  Transmission Date: 20120608
  Serious: No
  Sender: FDA-Public Use
  Company Number: US-PFIZER INC-2012022673

PATIENT
  Sex: Female

DRUGS (1)
  1. COLESTID [Suspect]
     Indication: BLOOD CHOLESTEROL ABNORMAL
     Dosage: 7.5 G, UNK
     Dates: start: 20120119

REACTIONS (2)
  - FEELING ABNORMAL [None]
  - RETCHING [None]
